FAERS Safety Report 5333863-6 (Version None)
Quarter: 2007Q2

REPORT INFORMATION
  Report Type: 
  Country: None (occurrence: None)
  Receive Date: 20070524
  Receipt Date: 20070514
  Transmission Date: 20071010
  Serious: Yes (Hospitalization)
  Sender: FDA-Public Use
  Company Number: SEWYE665316MAY07

PATIENT
  Sex: Male

DRUGS (7)
  1. TAZOCIN [Suspect]
     Indication: CHOLECYSTITIS ACUTE
     Dosage: 12 GMD
     Route: 042
     Dates: start: 20070309, end: 20070318
  2. MOVICOL [Concomitant]
  3. VOLTAREN [Concomitant]
  4. OMEPRAZOLE [Concomitant]
  5. OXYCONTIN [Concomitant]
  6. ALVEDON [Concomitant]
  7. KLEXANE [Concomitant]

REACTIONS (5)
  - ACTIVATED PARTIAL THROMBOPLASTIN TIME PROLONGED [None]
  - COAGULATION FACTOR XII LEVEL DECREASED [None]
  - COAGULOPATHY [None]
  - THROMBOCYTHAEMIA [None]
  - VON WILLEBRAND'S FACTOR ANTIGEN INCREASED [None]
